FAERS Safety Report 9758609 (Version 1)
Quarter: 2013Q4

REPORT INFORMATION
  Report Type: Spontaneous
  Country: US (occurrence: None)
  Receive Date: 20131216
  Receipt Date: 20131216
  Transmission Date: 20140711
  Serious: No
  Sender: FDA-Public Use
  Company Number: E7389-03651-SPO-US

PATIENT
  Sex: Female

DRUGS (3)
  1. HALAVEN [Suspect]
     Indication: BREAST CANCER METASTATIC
     Dosage: UNKNOWN, UNKNOWN INTRAVENOUS INFUSION? ? ? ?
  2. E7080 (HOPE) (INVESTIGATIONAL DRUG) [Suspect]
     Indication: BREAST CANCER METASTATIC
     Dosage: UNKNOWN, UNKNOWN, ORAL? ? ? ?
  3. FRAGMIN (HEPARIN-FRACTION, SODIUM SALT) [Suspect]
     Indication: THROMBOSIS PROPHYLAXIS
     Dosage: UNKNOWN, UNKNOWN, SUBCUTANEOUS? ? ? ?

REACTIONS (5)
  - Alopecia [None]
  - Arthralgia [None]
  - Nausea [None]
  - Peripheral sensory neuropathy [None]
  - Asthenia [None]
